FAERS Safety Report 18279050 (Version 2)
Quarter: 2021Q2

REPORT INFORMATION
  Report Type: Spontaneous
  Country: US (occurrence: US)
  Receive Date: 20200917
  Receipt Date: 20210528
  Transmission Date: 20210717
  Serious: Yes (Disabling, Other)
  Sender: FDA-Public Use
  Company Number: US-TEVA-2020-US-1828691

PATIENT
  Age: 44 Year
  Sex: Female
  Weight: 126.55 kg

DRUGS (11)
  1. DOCETAXEL SANOFI WINTHROP [Suspect]
     Active Substance: DOCETAXEL
     Indication: BREAST CANCER FEMALE
     Dosage: NO OF CYCLES: 04, FREQUENCY: EVERY THREE WEEKS; DOSAGE: 140MG, STRENGTH: 75MG/M2
     Route: 042
     Dates: start: 20160412, end: 20160412
  2. EMLA [Concomitant]
     Active Substance: LIDOCAINE\PRILOCAINE
     Route: 061
     Dates: start: 20000101
  3. COMPAZINE [Concomitant]
     Active Substance: PROCHLORPERAZINE MALEATE
     Dosage: STRENGTH: 10MG
     Route: 048
     Dates: start: 20000101
  4. DOCETAXEL SAGENT [Suspect]
     Active Substance: DOCETAXEL
     Indication: BREAST CANCER FEMALE
     Dosage: NO OF CYCLES: 04, FREQUENCY: EVERY THREE WEEKS; DOSAGE: 140MG, STRENGTH: 75MG/M2
     Route: 042
     Dates: start: 20160204, end: 20160204
  5. DOCETAXEL SAGENT [Suspect]
     Active Substance: DOCETAXEL
     Dosage: NO OF CYCLES: 04, FREQUENCY: EVERY THREE WEEKS; DOSAGE: 140MG, STRENGTH: 75MG/M2
     Route: 042
     Dates: start: 20160315, end: 20160315
  6. PACLITAXEL. [Suspect]
     Active Substance: PACLITAXEL
     Route: 065
  7. LUPRON [Suspect]
     Active Substance: LEUPROLIDE ACETATE
     Route: 065
     Dates: start: 20161004
  8. CYTOXAN [Suspect]
     Active Substance: CYCLOPHOSPHAMIDE
     Indication: BREAST CANCER FEMALE
     Dosage: STRENGTH: 600MG/M2, NO. OF CYCLES: 04, FREQUENCY: EVERY THREE WEEKS
     Route: 042
     Dates: start: 20160204, end: 20160412
  9. DECADRON [Concomitant]
     Active Substance: DEXAMETHASONE
     Dosage: STRENGTH: 4MG
     Route: 048
     Dates: start: 20000101
  10. DOCETAXEL SAGENT [Suspect]
     Active Substance: DOCETAXEL
     Dosage: NO OF CYCLES: 04, FREQUENCY: EVERY THREE WEEKS; DOSAGE: 140MG, STRENGTH: 75MG/M2
     Route: 042
     Dates: start: 20160223, end: 20160223
  11. NEURONTIN [Concomitant]
     Active Substance: GABAPENTIN
     Dosage: STRENGTH: 100MG
     Route: 048

REACTIONS (16)
  - Alopecia areata [Recovered/Resolved]
  - Neuralgia [Not Recovered/Not Resolved]
  - Hypoaesthesia [Not Recovered/Not Resolved]
  - Vision blurred [Not Recovered/Not Resolved]
  - Neuropathy peripheral [Recovering/Resolving]
  - Mean cell volume decreased [Not Recovered/Not Resolved]
  - Dry eye [Not Recovered/Not Resolved]
  - Heavy menstrual bleeding [Not Recovered/Not Resolved]
  - Hair texture abnormal [Recovered/Resolved]
  - Anaemia [Not Recovered/Not Resolved]
  - Glaucoma [Not Recovered/Not Resolved]
  - Fall [Not Recovered/Not Resolved]
  - Hair colour changes [Recovered/Resolved]
  - Madarosis [Recovered/Resolved]
  - Presbyopia [Not Recovered/Not Resolved]
  - Hot flush [Not Recovered/Not Resolved]

NARRATIVE: CASE EVENT DATE: 2016
